FAERS Safety Report 20109536 (Version 7)
Quarter: 2022Q3

REPORT INFORMATION
  Report Type: Report from Study
  Country: US (occurrence: US)
  Receive Date: 20211124
  Receipt Date: 20220708
  Transmission Date: 20221026
  Serious: Yes (Other)
  Sender: FDA-Public Use
  Company Number: US-NOVARTISPH-NVSC2021US267015

PATIENT
  Sex: Male

DRUGS (7)
  1. ENTRESTO [Suspect]
     Active Substance: SACUBITRIL\VALSARTAN
     Indication: Product used for unknown indication
     Dosage: 1 DOSAGE FORM, BID
     Route: 048
     Dates: start: 20211028
  2. ENTRESTO [Suspect]
     Active Substance: SACUBITRIL\VALSARTAN
     Dosage: 0.5 DF (49/51 MG), BID
     Route: 048
  3. ENTRESTO [Suspect]
     Active Substance: SACUBITRIL\VALSARTAN
     Dosage: 1 DOSAGE FORM, QD
     Route: 048
  4. POTASSIUM [Suspect]
     Active Substance: POTASSIUM
     Indication: Product used for unknown indication
     Dosage: UNK UNK, BID
     Route: 048
  5. POTASSIUM [Suspect]
     Active Substance: POTASSIUM
     Dosage: UNK, QD
     Route: 048
  6. POTASSIUM [Suspect]
     Active Substance: POTASSIUM
     Route: 048
  7. POTASSIUM [Suspect]
     Active Substance: POTASSIUM
     Route: 048

REACTIONS (9)
  - Prostate cancer [Unknown]
  - Feeling abnormal [Recovering/Resolving]
  - Gait inability [Recovering/Resolving]
  - Weight increased [Unknown]
  - Fatigue [Recovering/Resolving]
  - Dizziness [Unknown]
  - Wrong technique in product usage process [Recovering/Resolving]
  - Prescribed underdose [Recovering/Resolving]
  - Inappropriate schedule of product administration [Recovering/Resolving]
